FAERS Safety Report 6927885-9 (Version None)
Quarter: 2010Q3

REPORT INFORMATION
  Report Type: 
  Country: None (occurrence: None)
  Receive Date: 20100812
  Receipt Date: 20100805
  Transmission Date: 20110219
  Serious: Yes (Hospitalization)
  Sender: FDA-Public Use
  Company Number: DSA_43661_2010

PATIENT
  Sex: Female
  Weight: 83 kg

DRUGS (2)
  1. ENALAPRIL MALEATE [Suspect]
     Indication: HYPERTENSION
     Dosage: (DF)
  2. CQAB149B2356 VS PLACEBO VS SALMETEROL [Suspect]
     Indication: CHRONIC OBSTRUCTIVE PULMONARY DISEASE
     Dosage: (DF)
     Dates: start: 20100511

REACTIONS (5)
  - DISEASE PROGRESSION [None]
  - HYPERKALAEMIA [None]
  - HYPERTENSION [None]
  - HYPOTHYROIDISM [None]
  - MACULAR DEGENERATION [None]
